FAERS Safety Report 9874287 (Version 2)
Quarter: 2014Q1

REPORT INFORMATION
  Report Type: Spontaneous
  Country: US (occurrence: US)
  Receive Date: 20140206
  Receipt Date: 20140206
  Transmission Date: 20141002
  Serious: No
  Sender: FDA-Public Use
  Company Number: US-ACORDA-ACO_30875_2012

PATIENT
  Age: 65 Year
  Sex: Female
  Weight: 61.22 kg

DRUGS (8)
  1. AMPYRA [Suspect]
     Indication: GAIT DISTURBANCE
     Dosage: 10 MG, QD
     Dates: start: 20120225, end: 20120809
  2. AMPYRA [Suspect]
     Dosage: 10 MG, BID
     Dates: start: 20120810, end: 20120820
  3. AMPYRA [Suspect]
     Dosage: 10 MG, BID
     Dates: start: 201109, end: 201203
  4. AMPYRA [Suspect]
     Dosage: 10, MG, QD
     Route: 048
     Dates: start: 201203
  5. NEURONTIN [Concomitant]
     Indication: PRODUCT USED FOR UNKNOWN INDICATION
     Dosage: 600 MG, UNK
     Dates: start: 2003
  6. BACLOFEN [Concomitant]
     Indication: PRODUCT USED FOR UNKNOWN INDICATION
     Dosage: 20 MG, UNK
     Dates: start: 1994
  7. TRAZODONE [Concomitant]
     Indication: PRODUCT USED FOR UNKNOWN INDICATION
     Dosage: 100 MG, UNK
     Dates: start: 2003
  8. CYMBALTA [Concomitant]
     Indication: PRODUCT USED FOR UNKNOWN INDICATION
     Dosage: 60 MG, UNK
     Dates: start: 2011

REACTIONS (9)
  - Muscular weakness [Not Recovered/Not Resolved]
  - Wrong technique in drug usage process [Unknown]
  - Drug intolerance [Recovered/Resolved]
  - Nausea [Recovered/Resolved]
  - Insomnia [Not Recovered/Not Resolved]
  - Constipation [Recovered/Resolved]
  - Headache [Recovered/Resolved]
  - Inappropriate schedule of drug administration [Unknown]
  - Back pain [Not Recovered/Not Resolved]
